FAERS Safety Report 8986072 (Version 2)
Quarter: 2013Q1

REPORT INFORMATION
  Report Type: Spontaneous
  Country: US (occurrence: None)
  Receive Date: 20121218
  Receipt Date: 20130104
  Transmission Date: 20140127
  Serious: Yes (Death, Hospitalization)
  Sender: FDA-Public Use
  Company Number: 2012-1502

PATIENT
  Age: 66 Year
  Sex: Female

DRUGS (13)
  1. KYPROLIS [Suspect]
     Indication: PLASMA CELL MYELOMA
     Dosage: (31 MG,2 IN 1 WK)
     Route: 042
     Dates: start: 20120905, end: 20120906
  2. DEXAMETHASONE [Concomitant]
  3. PROTONIX [Concomitant]
  4. MS-CONTIN [Concomitant]
  5. OXYCODONE(OXYCODONE)(OXYCODONE) [Concomitant]
  6. XANAX [Concomitant]
  7. METOPROLOL [Concomitant]
  8. AMLODIPINE [Concomitant]
  9. MULTIVITAMINS [Concomitant]
  10. MIRALAX [Concomitant]
  11. SENNA [Concomitant]
  12. MILK OF MAGNESIA [Concomitant]
  13. VITAMIN B [Concomitant]

REACTIONS (23)
  - Rectal haemorrhage [None]
  - Hallucination [None]
  - Renal failure acute [None]
  - Dialysis [None]
  - Plasma cell myeloma [None]
  - Atrial fibrillation [None]
  - Asthenia [None]
  - Hyponatraemia [None]
  - Metabolic acidosis [None]
  - Hyperkalaemia [None]
  - Nephrogenic anaemia [None]
  - Thrombocytopenia [None]
  - Tachycardia [None]
  - Fluid overload [None]
  - Dyspnoea [None]
  - Depression [None]
  - Non-cardiogenic pulmonary oedema [None]
  - Renal tubular necrosis [None]
  - Decreased appetite [None]
  - Hypotension [None]
  - Haemodynamic instability [None]
  - Pain [None]
  - Acute pulmonary oedema [None]
